FAERS Safety Report 22347590 (Version 1)
Quarter: 2023Q2

REPORT INFORMATION
  Report Type: Spontaneous
  Country: US (occurrence: US)
  Receive Date: 20230522
  Receipt Date: 20230522
  Transmission Date: 20230721
  Serious: No
  Sender: FDA-Public Use
  Company Number: US-BRISTOL-MYERS SQUIBB COMPANY-2023-066764

PATIENT
  Age: 65 Year
  Sex: Female
  Weight: 76.2 kg

DRUGS (1)
  1. REVLIMID [Suspect]
     Active Substance: LENALIDOMIDE
     Indication: Plasma cell myeloma
     Route: 048

REACTIONS (3)
  - Neuralgia [Recovering/Resolving]
  - Tumour pain [Recovering/Resolving]
  - Spinal pain [Recovering/Resolving]
